FAERS Safety Report 18155931 (Version 1)
Quarter: 2020Q3

REPORT INFORMATION
  Report Type: Spontaneous
  Country: US (occurrence: US)
  Receive Date: 20200814
  Receipt Date: 20200814
  Transmission Date: 20201103
  Serious: No
  Sender: FDA-Public Use
  Company Number: None

PATIENT
  Age: 64 Year
  Sex: Female

DRUGS (1)
  1. PEMAZYRE [Suspect]
     Active Substance: PEMIGATINIB
     Indication: HEPATOBILIARY CANCER
     Route: 048
     Dates: start: 20200729

REACTIONS (1)
  - Hospice care [None]

NARRATIVE: CASE EVENT DATE: 20200813
